FAERS Safety Report 17481020 (Version 1)
Quarter: 2020Q1

REPORT INFORMATION
  Report Type: Spontaneous
  Country: US (occurrence: US)
  Receive Date: 20200302
  Receipt Date: 20200302
  Transmission Date: 20200409
  Serious: No
  Sender: FDA-Public Use
  Company Number: US-ALEXION PHARMACEUTICALS INC.-A202002418

PATIENT
  Sex: Male
  Weight: 11.79 kg

DRUGS (2)
  1. AMOXICILLIN. [Concomitant]
     Active Substance: AMOXICILLIN
     Indication: PRODUCT USED FOR UNKNOWN INDICATION
     Dosage: 400MG/5ML BID, FOR 10 DAYS
     Route: 065
  2. KANUMA [Suspect]
     Active Substance: SEBELIPASE ALFA
     Indication: LIPID METABOLISM DISORDER
     Dosage: 8 MG, Q2W
     Route: 065
     Dates: start: 20190201

REACTIONS (2)
  - Ear pain [Unknown]
  - Off label use [Not Recovered/Not Resolved]
